FAERS Safety Report 14178903 (Version 1)
Quarter: 2017Q4

REPORT INFORMATION
  Report Type: Spontaneous
  Country: FR (occurrence: FR)
  Receive Date: 20171110
  Receipt Date: 20171110
  Transmission Date: 20180321
  Serious: Yes (Hospitalization)
  Sender: FDA-Public Use
  Company Number: FR-PFIZER INC-2017461791

PATIENT
  Age: 60 Year
  Sex: Female

DRUGS (5)
  1. IRINOTECAN HOSPIRA [Suspect]
     Active Substance: IRINOTECAN
     Indication: RECTAL ADENOCARCINOMA
     Dosage: 254 MG, DAILY CYCLIC (EVERY 15 DAYS)
     Route: 042
     Dates: start: 20170901
  2. FOLINIC ACID [Concomitant]
     Active Substance: LEUCOVORIN
     Indication: RECTAL ADENOCARCINOMA
     Dosage: UNK
     Dates: start: 20170901
  3. ERBITUX [Suspect]
     Active Substance: CETUXIMAB
     Indication: RECTAL ADENOCARCINOMA
     Dosage: 750 MG, CYCLIC (EVERY 15 DAYS)
     Route: 042
     Dates: start: 20170901
  4. FLUOROURACILE ACCORD [Suspect]
     Active Substance: FLUOROURACIL
     Indication: RECTAL ADENOCARCINOMA
     Dosage: 564 MG, SINGLE
     Route: 040
     Dates: start: 20170901, end: 20170901
  5. FLUOROURACILE ACCORD [Suspect]
     Active Substance: FLUOROURACIL
     Dosage: 3380 MG, BY INFUSION PUMP WITHIN 48 HOURS
     Route: 041
     Dates: start: 20170901

REACTIONS (5)
  - Diarrhoea [Recovered/Resolved]
  - Major depression [Recovered/Resolved]
  - Nausea [Recovered/Resolved]
  - Vomiting [Recovered/Resolved]
  - Depression suicidal [Recovered/Resolved]

NARRATIVE: CASE EVENT DATE: 20170904
